FAERS Safety Report 6055079-0 (Version None)
Quarter: 2009Q1

REPORT INFORMATION
  Report Type: 
  Country: None (occurrence: None)
  Receive Date: 20090128
  Receipt Date: 20090119
  Transmission Date: 20090719
  Serious: Yes (Hospitalization)
  Sender: FDA-Public Use
  Company Number: FR-ROCHE-609470

PATIENT
  Sex: Male

DRUGS (9)
  1. VALIUM [Suspect]
     Indication: DRUG USE FOR UNKNOWN INDICATION
     Dosage: DOSAGE REGIMEN: 90 DROPS
     Route: 048
     Dates: end: 20080601
  2. MEPRONIZINE [Suspect]
     Indication: DRUG USE FOR UNKNOWN INDICATION
     Dosage: DOSAGE REGIMEN: 1 DOSE QD.
     Route: 048
  3. LOXAPAC [Suspect]
     Indication: DRUG USE FOR UNKNOWN INDICATION
     Dosage: DOSAGE REGIMEN: 60 DROPS.
     Route: 048
     Dates: end: 20080601
  4. XATRAL [Concomitant]
     Dosage: DRUG REPORTED AS XATRAL LP.
     Route: 048
  5. THERALENE [Concomitant]
     Route: 048
  6. LEVOTHYROX [Concomitant]
     Route: 048
  7. DUPHALAC [Concomitant]
     Dosage: DOSE REPORTED AS 6 DOSES PER DAY.
     Route: 048
  8. DAFALGAN [Concomitant]
     Dosage: DOSE REPORTED AS 6 DOSES PER DAY.
     Route: 048
     Dates: end: 20080101
  9. NEXIUM [Concomitant]
     Route: 048

REACTIONS (3)
  - DYSPNOEA [None]
  - LUNG DISORDER [None]
  - OVERDOSE [None]
